FAERS Safety Report 5982136-7 (Version None)
Quarter: 2008Q4

REPORT INFORMATION
  Report Type: 
  Country: None (occurrence: None)
  Receive Date: 20081202
  Receipt Date: 20081117
  Transmission Date: 20090506
  Serious: Yes (Death)
  Sender: FDA-Public Use
  Company Number: CLOF-1000316

PATIENT
  Age: 17 Year
  Sex: Male
  Weight: 100 kg

DRUGS (1)
  1. CLOLAR [Suspect]
     Indication: ACUTE LEUKAEMIA
     Dosage: INTRAVENOUS
     Route: 042
     Dates: start: 20080909, end: 20080913

REACTIONS (2)
  - FEBRILE BONE MARROW APLASIA [None]
  - RESPIRATORY FAILURE [None]
